FAERS Safety Report 7548650-8 (Version None)
Quarter: 2011Q2

REPORT INFORMATION
  Report Type: 
  Country: None (occurrence: None)
  Receive Date: 20110615
  Receipt Date: 20110531
  Transmission Date: 20111010
  Serious: No
  Sender: FDA-Public Use
  Company Number: US-B.I. PHARMACEUTICALS,INC./RIDGEFIELD-2011-BP-14344BP

PATIENT
  Age: 93 Year
  Sex: Male

DRUGS (8)
  1. LIPTIOR [Concomitant]
     Indication: BLOOD CHOLESTEROL INCREASED
     Route: 048
  2. ASPIRIN [Concomitant]
     Indication: PROPHYLAXIS
     Dosage: 81 MG
     Route: 048
  3. LISINOPRIL [Concomitant]
     Indication: HYPERTENSION
     Route: 048
  4. PRADAXA [Suspect]
     Indication: ATRIAL FIBRILLATION
     Dosage: 150 MG
     Route: 048
     Dates: start: 20101201
  5. FUROSEMIDE [Concomitant]
     Indication: HYPERTENSION
     Route: 048
  6. METOPROLOL [Concomitant]
     Indication: HYPERTENSION
     Route: 048
  7. SINGULAIR [Concomitant]
     Indication: CARDIAC DISORDER
     Route: 048
  8. FERROGRAD [Concomitant]
     Indication: MINERAL SUPPLEMENTATION
     Route: 048

REACTIONS (4)
  - GAIT DISTURBANCE [None]
  - CONTUSION [None]
  - PAIN IN EXTREMITY [None]
  - ASTHENIA [None]
